FAERS Safety Report 9619955 (Version 1)
Quarter: 2013Q4

REPORT INFORMATION
  Report Type: Spontaneous
  Country: US (occurrence: US)
  Receive Date: 20131014
  Receipt Date: 20131014
  Transmission Date: 20140711
  Serious: No
  Sender: FDA-Public Use
  Company Number: US-PFIZER INC-2013291595

PATIENT
  Age: 70 Year
  Sex: Female
  Weight: 47.62 kg

DRUGS (6)
  1. SOLU-MEDROL [Suspect]
     Indication: SWELLING
     Dosage: UNK, WEEKLY
     Route: 014
     Dates: start: 201206, end: 201309
  2. SOLU-MEDROL [Suspect]
     Indication: OEDEMA
  3. SOLU-MEDROL [Suspect]
     Indication: ARTHRALGIA
  4. SOLU-MEDROL [Suspect]
     Indication: PAIN IN EXTREMITY
  5. SOLU-MEDROL [Suspect]
     Indication: INTERVERTEBRAL DISC DISORDER
  6. METHADONE [Concomitant]
     Indication: PAIN
     Dosage: 30 MG, 1X/DAY
     Dates: start: 2000

REACTIONS (11)
  - Purpura [Not Recovered/Not Resolved]
  - Blood pressure increased [Not Recovered/Not Resolved]
  - Blood glucose increased [Not Recovered/Not Resolved]
  - Mood swings [Not Recovered/Not Resolved]
  - Affective disorder [Not Recovered/Not Resolved]
  - Anger [Not Recovered/Not Resolved]
  - Insomnia [Not Recovered/Not Resolved]
  - Contusion [Not Recovered/Not Resolved]
  - Dizziness [Not Recovered/Not Resolved]
  - Decreased appetite [Not Recovered/Not Resolved]
  - Cushingoid [Not Recovered/Not Resolved]
